FAERS Safety Report 4855069-7 (Version None)
Quarter: 2005Q4

REPORT INFORMATION
  Report Type: 
  Country: None (occurrence: None)
  Receive Date: 20051214
  Receipt Date: 20051205
  Transmission Date: 20060501
  Serious: Yes (Disabling, Other)
  Sender: FDA-Public Use
  Company Number: 2005165258

PATIENT
  Sex: Male
  Weight: 108.8633 kg

DRUGS (7)
  1. ZOLOFT [Suspect]
     Indication: MAJOR DEPRESSION
     Dates: end: 20051201
  2. OXYCODONE (OXYCODONE) [Concomitant]
     Indication: PAIN
  3. DEMEROL [Suspect]
     Indication: PAIN
  4. PERCOCET [Suspect]
     Indication: PAIN
  5. TENORMIN [Concomitant]
  6. CELEBREX [Concomitant]
  7. VALIUM [Concomitant]

REACTIONS (13)
  - ABNORMAL BEHAVIOUR [None]
  - AMNESIA [None]
  - ANGER [None]
  - DEPRESSION [None]
  - DRUG DETOXIFICATION [None]
  - ECONOMIC PROBLEM [None]
  - INSOMNIA [None]
  - IRRITABILITY [None]
  - LYMPHOEDEMA [None]
  - MORBID THOUGHTS [None]
  - SPEECH DISORDER [None]
  - TREATMENT NONCOMPLIANCE [None]
  - WEIGHT INCREASED [None]
